FAERS Safety Report 24110487 (Version 9)
Quarter: 2024Q4

REPORT INFORMATION
  Report Type: Spontaneous
  Country: US (occurrence: US)
  Receive Date: 20240718
  Receipt Date: 20241209
  Transmission Date: 20250115
  Serious: No
  Sender: PFIZER
  Company Number: US-PFIZER INC-202400216003

PATIENT
  Age: 51 Year
  Sex: Female

DRUGS (3)
  1. TIVDAK [Suspect]
     Active Substance: TISOTUMAB VEDOTIN-TFTV
     Indication: Endometrial cancer
     Dosage: INFUSION/134 MG EVERY 21 DAYS
  2. TIVDAK [Suspect]
     Active Substance: TISOTUMAB VEDOTIN-TFTV
     Dosage: TIVDAK 91 MG EVERY 21 DAYS
  3. TIVDAK [Suspect]
     Active Substance: TISOTUMAB VEDOTIN-TFTV
     Dosage: 91MG, Q3W(ONCE EVERY 3 WEEKS), IV/91MG EVERY 21 DAYS.
     Route: 042
     Dates: start: 20240725

REACTIONS (2)
  - Neoplasm progression [Unknown]
  - Off label use [Unknown]
